FAERS Safety Report 9614289 (Version 1)
Quarter: 2013Q4

REPORT INFORMATION
  Report Type: Spontaneous
  Country: GB (occurrence: GB)
  Receive Date: 20131011
  Receipt Date: 20131011
  Transmission Date: 20140711
  Serious: Yes (Other)
  Sender: FDA-Public Use
  Company Number: GB-BAYER-2013-122515

PATIENT
  Sex: Female

DRUGS (1)
  1. BETAFERON [Suspect]
     Dosage: 250 ?G, UNK

REACTIONS (3)
  - Glaucoma [None]
  - Cataract [None]
  - Drug dose omission [None]
